FAERS Safety Report 16904690 (Version 1)
Quarter: 2019Q4

REPORT INFORMATION
  Report Type: Spontaneous
  Country: US (occurrence: US)
  Receive Date: 20191010
  Receipt Date: 20191010
  Transmission Date: 20200122
  Serious: No
  Sender: FDA-Public Use
  Company Number: US-009507513-1910USA007927

PATIENT
  Age: 18 Year
  Sex: Female
  Weight: 57.6 kg

DRUGS (1)
  1. NEXPLANON [Suspect]
     Active Substance: ETONOGESTREL
     Indication: MENSTRUAL CYCLE MANAGEMENT
     Dosage: LEFT ARM, EVERY THREE YEARS
     Route: 059
     Dates: start: 20190909

REACTIONS (2)
  - Product use in unapproved indication [Unknown]
  - Menorrhagia [Not Recovered/Not Resolved]

NARRATIVE: CASE EVENT DATE: 201909
